FAERS Safety Report 7113703-5 (Version None)
Quarter: 2010Q4

REPORT INFORMATION
  Report Type: 
  Country: None (occurrence: None)
  Receive Date: 20101119
  Receipt Date: 20101117
  Transmission Date: 20110411
  Serious: Yes (Hospitalization)
  Sender: FDA-Public Use
  Company Number: FR-BRISTOL-MYERS SQUIBB COMPANY-15329410

PATIENT
  Age: 57 Year
  Sex: Male

DRUGS (4)
  1. REYATAZ [Suspect]
     Indication: HIV INFECTION
     Dates: start: 20060301, end: 20100724
  2. TRUVADA [Suspect]
     Indication: HIV INFECTION
     Dates: start: 20060301, end: 20100724
  3. NORVIR [Suspect]
     Indication: HIV INFECTION
     Dates: start: 20060301, end: 20100724
  4. BEFIZAL [Suspect]
     Indication: HYPERCHOLESTEROLAEMIA
     Dates: start: 20100429, end: 20100724

REACTIONS (5)
  - METABOLIC ACIDOSIS [None]
  - RECTAL HAEMORRHAGE [None]
  - RENAL FAILURE ACUTE [None]
  - RENAL TUBULAR NECROSIS [None]
  - RHABDOMYOLYSIS [None]
